FAERS Safety Report 19420735 (Version 1)
Quarter: 2021Q2

REPORT INFORMATION
  Report Type: Report from Study
  Country: RU (occurrence: RU)
  Receive Date: 20210616
  Receipt Date: 20210616
  Transmission Date: 20210717
  Serious: Yes (Hospitalization)
  Sender: FDA-Public Use
  Company Number: RU-ROCHE-1918514

PATIENT
  Age: 66 Year
  Sex: Female
  Weight: 120 kg

DRUGS (15)
  1. ETOPOSIDE. [Suspect]
     Active Substance: ETOPOSIDE
     Indication: SMALL CELL LUNG CANCER EXTENSIVE STAGE
     Dosage: D1, D2 AND D3. DATE OF MOST RECENT DOSE (200 MG) PRIOR TO AE 05/APR/2017.?100 MG/M2, ONCE IN 3 WEEKS
     Route: 042
     Dates: start: 20170220
  2. METOCLOPRAMIDUM [Concomitant]
     Route: 030
     Dates: start: 20170403, end: 20170404
  3. LEVOTHYROXINUM NATRICUM [Concomitant]
     Indication: HYPOTHYROIDISM
     Route: 048
     Dates: start: 20170217
  4. FILGRASTIM [Concomitant]
     Active Substance: FILGRASTIM
     Indication: NEUTROPENIA
     Route: 058
     Dates: start: 20170411, end: 20170411
  5. LOPERAMIDUM [Concomitant]
     Indication: DIARRHOEA
     Dosage: 1 TABLET
     Route: 048
     Dates: start: 20170411, end: 20170411
  6. LIDOCAINUM [Concomitant]
     Indication: LOCAL ANAESTHESIA
     Route: 058
     Dates: start: 20170411, end: 20170411
  7. CARBOPLATIN. [Suspect]
     Active Substance: CARBOPLATIN
     Indication: SMALL CELL LUNG CANCER EXTENSIVE STAGE
     Dosage: DATE OF MOST RECENT DOSE (695 MG) PRIOR TO AE 03/APR/2017.?ONCE IN THREE WEEKS AT DAY ONE OF EACH CY
     Route: 042
     Dates: start: 20170220
  8. ATEZOLIZUMAB. [Suspect]
     Active Substance: ATEZOLIZUMAB
     Indication: SMALL CELL LUNG CANCER EXTENSIVE STAGE
     Dosage: DATE OF MOST RECENT DOSE PRIOR TO AE: 03/APR/2017?DATE OF LAST DOSE PRIOR TO SAE: 20/FEB/2017, 13/MA
     Route: 042
     Dates: start: 20170220
  9. NIFEDIPINUM [Concomitant]
     Indication: HYPERTENSION
     Route: 048
  10. FAMOTIDINUM [Concomitant]
     Indication: PRODUCT USED FOR UNKNOWN INDICATION
     Route: 048
     Dates: start: 20170414, end: 20170418
  11. ONDANSETRONUM [Concomitant]
     Active Substance: ONDANSETRON
     Indication: VOMITING
     Route: 048
     Dates: start: 20170313, end: 20170315
  12. SODIUM CHLORIDE. [Concomitant]
     Active Substance: SODIUM CHLORIDE
     Indication: ASTHENIA
     Route: 042
  13. ONDANSETRONUM [Concomitant]
     Active Substance: ONDANSETRON
     Route: 042
     Dates: start: 20170403, end: 20170404
  14. FILGRASTIM [Concomitant]
     Active Substance: FILGRASTIM
     Indication: LEUKOPENIA
  15. METOCLOPRAMIDUM [Concomitant]
     Indication: NAUSEA
     Route: 030
     Dates: start: 20170411, end: 20170411

REACTIONS (4)
  - Asthenia [Recovered/Resolved]
  - Abdominal adhesions [Recovered/Resolved]
  - Diarrhoea [Recovered/Resolved]
  - Intestinal obstruction [Recovered/Resolved]

NARRATIVE: CASE EVENT DATE: 20170227
